FAERS Safety Report 8391158-0 (Version None)
Quarter: 2012Q2

REPORT INFORMATION
  Report Type: 
  Country: None (occurrence: None)
  Receive Date: 20120529
  Receipt Date: 20120515
  Transmission Date: 20120825
  Serious: Yes (Hospitalization)
  Sender: FDA-Public Use
  Company Number: AT-ELI_LILLY_AND_COMPANY-AT201205006499

PATIENT
  Age: 112 Year

DRUGS (17)
  1. DOXAZOSIN MESYLATE [Concomitant]
     Dosage: 2 MG, UNK
  2. CYMBALTA [Suspect]
     Dosage: 30 MG, UNKNOWN
     Dates: start: 20111130, end: 20111205
  3. RISPERDAL [Concomitant]
     Dosage: 0.5 DF, BID
     Dates: start: 20111215
  4. TAMSULOSIN HCL [Concomitant]
     Dosage: 0.4 MG, UNK
  5. LISINOPRIL [Concomitant]
     Dosage: 20 MG, UNK
     Dates: start: 20111205
  6. ALPRAZOLAM [Concomitant]
     Dosage: 0.5 DF, BID
  7. LISINOPRIL HCT                     /01613901/ [Concomitant]
     Dosage: UNK
     Dates: end: 20111205
  8. DOMINAL FORTE [Concomitant]
     Dosage: 80 MG, QD
     Dates: start: 20111204
  9. CYMBALTA [Suspect]
     Dosage: 60 MG, UNKNOWN
     Dates: start: 20111205, end: 20111205
  10. SERALIN [Concomitant]
     Dosage: 50 MG, UNKNOWN
     Dates: start: 20111209
  11. AMLODIPINE BESYLATE [Concomitant]
     Dosage: 5 MG, UNK
  12. CIPROFLOXACIN [Concomitant]
     Dosage: 1000 MG, UNK
     Dates: start: 20111126
  13. SIMVASTATIN [Concomitant]
     Dosage: 40 MG, UNK
  14. SERALIN [Concomitant]
     Dosage: UNK UNK, QD
     Dates: start: 20111212
  15. ASPIRIN [Concomitant]
     Dosage: 100 DF, UNK
  16. MOLAXOLE [Concomitant]
  17. PANTOPRAZOLE SODIUM [Concomitant]
     Dosage: 40 MG, UNK

REACTIONS (2)
  - HYPOKALAEMIA [None]
  - HYPONATRAEMIA [None]
